FAERS Safety Report 20992686 (Version 1)
Quarter: 2022Q2

REPORT INFORMATION
  Report Type: Other
  Country: GB (occurrence: GB)
  Receive Date: 20220622
  Receipt Date: 20220622
  Transmission Date: 20220720
  Serious: Yes (Disabling)
  Sender: FDA-Public Use
  Company Number: None

PATIENT
  Sex: Male
  Weight: 174 kg

DRUGS (2)
  1. EMTRICITABINE\TENOFOVIR DISOPROXIL FUMARATE [Interacting]
     Active Substance: EMTRICITABINE\TENOFOVIR DISOPROXIL FUMARATE
     Indication: Product used for unknown indication
     Dosage: 1 DOSAGE FORM, QD (200MG /245MG AT NIGHT)
     Route: 065
     Dates: start: 20190101, end: 20220207
  2. LEVOTHYROXINE [Interacting]
     Active Substance: LEVOTHYROXINE
     Indication: Hormone replacement therapy
     Dosage: UNK
     Route: 065

REACTIONS (7)
  - Dyspepsia [Recovered/Resolved]
  - Malabsorption [Recovered/Resolved]
  - Drug interaction [Unknown]
  - Feeling abnormal [Recovered/Resolved]
  - Asthenia [Recovered/Resolved]
  - Gastric disorder [Recovered/Resolved]
  - Illness [Recovered/Resolved]

NARRATIVE: CASE EVENT DATE: 20190101
